FAERS Safety Report 6813758-9 (Version None)
Quarter: 2010Q3

REPORT INFORMATION
  Report Type: 
  Country: None (occurrence: None)
  Receive Date: 20100701
  Receipt Date: 20100623
  Transmission Date: 20110219
  Serious: Yes (Other)
  Sender: FDA-Public Use
  Company Number: US-GENENTECH-303134

PATIENT
  Sex: Female
  Weight: 84.807 kg

DRUGS (14)
  1. XOLAIR [Suspect]
     Indication: ASTHMA
     Dosage: 375 MG, Q2W
     Route: 058
     Dates: start: 20080811
  2. ALBUTEROL [Concomitant]
     Indication: ASTHMA
     Dosage: UNK
     Dates: start: 20080530
  3. ATIVAN [Concomitant]
     Indication: ANXIETY
     Dosage: UNK
     Dates: start: 20100128
  4. CLARINEX [Concomitant]
     Indication: ANTIALLERGIC THERAPY
     Dosage: UNK
  5. SUMATRIPTAN SUCCINATE (IMITREX) [Concomitant]
     Indication: MIGRAINE
     Dosage: UNK
     Dates: start: 20100128
  6. NASACORT AQ [Concomitant]
     Indication: HYPERSENSITIVITY
     Dosage: UNK
     Dates: start: 20080530
  7. PANTOPRAZOLE SODIUM [Concomitant]
     Indication: GASTROOESOPHAGEAL REFLUX DISEASE
     Dosage: UNK
     Dates: start: 20080708
  8. PROVENTIL GENTLEHALER [Concomitant]
     Indication: ASTHMA
     Dosage: UNK
     Dates: start: 20090929
  9. SINGULAIR [Concomitant]
     Indication: HYPERSENSITIVITY
     Dosage: UNK
     Dates: start: 20080604
  10. SINGULAIR [Concomitant]
     Indication: ASTHMA
  11. SYMBICORT [Concomitant]
     Indication: ASTHMA
     Dosage: UNK
     Dates: start: 20080709
  12. ZOLOFT [Concomitant]
     Indication: ANXIETY
     Dosage: UNK
     Dates: start: 20100128
  13. ZOLOFT [Concomitant]
     Indication: DEPRESSION
  14. ZOVIA 1/35E-21 [Concomitant]
     Indication: CONTRACEPTION
     Dosage: UNK
     Dates: start: 20090728

REACTIONS (4)
  - FATIGUE [None]
  - PRURITUS [None]
  - TONGUE DISCOLOURATION [None]
  - WHEEZING [None]
